FAERS Safety Report 14567854 (Version 1)
Quarter: 2018Q1

REPORT INFORMATION
  Report Type: Spontaneous
  Country: US (occurrence: US)
  Receive Date: 20180223
  Receipt Date: 20180223
  Transmission Date: 20180509
  Serious: Yes (Other)
  Sender: FDA-Public Use
  Company Number: US-AMGEN-USASP2018022968

PATIENT
  Age: 79 Year
  Sex: Female

DRUGS (1)
  1. PROLIA [Suspect]
     Active Substance: DENOSUMAB
     Indication: OSTEOPOROSIS POSTMENOPAUSAL
     Dosage: UNK
     Route: 065

REACTIONS (14)
  - Pain in jaw [Unknown]
  - Injection site bruising [Unknown]
  - Skin atrophy [Unknown]
  - Sinusitis [Unknown]
  - Trismus [Unknown]
  - Loss of personal independence in daily activities [Unknown]
  - Tooth extraction [Unknown]
  - Injection site pain [Unknown]
  - Pain in extremity [Unknown]
  - Neck pain [Unknown]
  - Bone disorder [Unknown]
  - Weight decreased [Recovering/Resolving]
  - Wrong technique in product usage process [Unknown]
  - Myalgia [Not Recovered/Not Resolved]
